FAERS Safety Report 14246719 (Version 1)
Quarter: 2017Q4

REPORT INFORMATION
  Report Type: Spontaneous
  Country: US (occurrence: None)
  Receive Date: 20171201
  Receipt Date: 20171201
  Transmission Date: 20180321
  Serious: Yes (Hospitalization)
  Sender: FDA-Public Use
  Company Number: None

PATIENT
  Age: 79 Year
  Sex: Female

DRUGS (10)
  1. ACTEMRA [Concomitant]
     Active Substance: TOCILIZUMAB
  2. AMLODIPINE [Concomitant]
     Active Substance: AMLODIPINE BESYLATE
  3. NAPROXEN. [Concomitant]
     Active Substance: NAPROXEN
  4. CALCIUM/D [Concomitant]
  5. NITROGLYCER [Concomitant]
  6. MULTI-VITAMIN [Concomitant]
     Active Substance: .ALPHA.-TOCOPHEROL ACETATE, DL-\ASCORBIC ACID\CYANOCOBALAMIN\FLUORIDE ION\FOLIC ACID\NIACIN\PYRIDOXINE\RIBOFLAVIN\THIAMINE\VITAMIN A\VITAMIN D
  7. PROLIA [Suspect]
     Active Substance: DENOSUMAB
     Indication: SENILE OSTEOPOROSIS
     Dosage: 60MG Q 5 MONTHS SQ
     Route: 058
     Dates: start: 20160602
  8. RESTASIS [Concomitant]
     Active Substance: CYCLOSPORINE
  9. NEXIUM [Concomitant]
     Active Substance: ESOMEPRAZOLE MAGNESIUM
  10. CRESTOR [Concomitant]
     Active Substance: ROSUVASTATIN CALCIUM

REACTIONS (2)
  - Colitis [None]
  - Therapy cessation [None]

NARRATIVE: CASE EVENT DATE: 201711
